FAERS Safety Report 9009882 (Version 2)
Quarter: 2013Q1

REPORT INFORMATION
  Report Type: Spontaneous
  Country: ES (occurrence: ES)
  Receive Date: 20130111
  Receipt Date: 20130116
  Transmission Date: 20140127
  Serious: Yes (Hospitalization, Other)
  Sender: FDA-Public Use
  Company Number: ES-VERTEX PHARMACEUTICALS INC.-2013-000490

PATIENT
  Age: 44 None
  Sex: Male
  Weight: 62.5 kg

DRUGS (7)
  1. INCIVO [Suspect]
     Indication: HEPATITIS C
     Dosage: UNK
     Route: 048
     Dates: start: 20121005, end: 20121227
  2. COPEGUS [Concomitant]
     Indication: HEPATITIS C
     Dosage: UNK, QD
     Route: 048
     Dates: start: 20121005
  3. COPEGUS [Concomitant]
     Dosage: 400 MG, UNK
     Route: 048
     Dates: end: 20121227
  4. COPEGUS [Concomitant]
     Dosage: 600 MG, QD
     Route: 048
  5. PEGASYS [Concomitant]
     Indication: HEPATITIS C
     Dosage: 180 ?G, QW
     Route: 058
     Dates: start: 20121005, end: 20121221
  6. METOCLOPRAMID [Concomitant]
     Indication: NAUSEA
     Route: 048
     Dates: start: 20121016, end: 20121227
  7. OMEPRAZOLE [Concomitant]
     Indication: DYSPEPSIA
     Dates: start: 20121016, end: 20121227

REACTIONS (5)
  - Dyspepsia [Unknown]
  - Drug reaction with eosinophilia and systemic symptoms [Not Recovered/Not Resolved]
  - Anaemia [Unknown]
  - Dry mouth [Unknown]
  - Ageusia [Unknown]
